FAERS Safety Report 14425641 (Version 2)
Quarter: 2018Q1

REPORT INFORMATION
  Report Type: Spontaneous
  Country: FR (occurrence: FR)
  Receive Date: 20180123
  Receipt Date: 20180215
  Transmission Date: 20180509
  Serious: Yes (Other)
  Sender: FDA-Public Use
  Company Number: FR-TEVA-2018-FR-848169

PATIENT
  Sex: Male

DRUGS (2)
  1. FINASTERIDE. [Suspect]
     Active Substance: FINASTERIDE
     Route: 065
  2. PROPECIA [Suspect]
     Active Substance: FINASTERIDE
     Route: 048

REACTIONS (8)
  - Sexual dysfunction [Unknown]
  - Abnormal behaviour [Unknown]
  - Physical disability [Unknown]
  - Nightmare [Unknown]
  - Asthenia [Unknown]
  - Cognitive disorder [Unknown]
  - Insomnia [Unknown]
  - Suicide attempt [Unknown]
